FAERS Safety Report 12523311 (Version 2)
Quarter: 2016Q3

REPORT INFORMATION
  Report Type: Spontaneous
  Country: US (occurrence: US)
  Receive Date: 20160702
  Receipt Date: 20160917
  Transmission Date: 20161109
  Serious: No
  Sender: FDA-Public Use
  Company Number: US-ASTRAZENECA-2016SE61632

PATIENT
  Sex: Male
  Weight: 124.7 kg

DRUGS (2)
  1. BYDUREON [Suspect]
     Active Substance: EXENATIDE
     Indication: BLOOD GLUCOSE ABNORMAL
     Dosage: PEN
     Route: 058
     Dates: start: 201601
  2. BYDUREON [Suspect]
     Active Substance: EXENATIDE
     Indication: BLOOD GLUCOSE ABNORMAL
     Dosage: 2 MG ONCE A WEEK, SINGLE DOSE TRAY
     Route: 058
     Dates: start: 2014, end: 201601

REACTIONS (3)
  - Needle issue [Unknown]
  - Injection site pain [Unknown]
  - Device malfunction [Unknown]
